FAERS Safety Report 4638258-6 (Version None)
Quarter: 2005Q2

REPORT INFORMATION
  Report Type: 
  Country: None (occurrence: None)
  Receive Date: 20050418
  Receipt Date: 20050318
  Transmission Date: 20051028
  Serious: Yes (Other)
  Sender: FDA-Public Use
  Company Number: 2005045227

PATIENT
  Age: 71 Year
  Sex: Female
  Weight: 61.2356 kg

DRUGS (4)
  1. DETROL LA [Suspect]
     Indication: MICTURITION URGENCY
     Dosage: 2 MG (2 MG, 1 IN 1 D), ORAL
     Route: 048
     Dates: start: 20030101
  2. ESTRADIOL [Concomitant]
  3. BENAZEPRIL HCL [Concomitant]
  4. BROMAZEPAM (BROMAZEPAM) [Concomitant]

REACTIONS (5)
  - DRUG INEFFECTIVE [None]
  - NASAL OPERATION [None]
  - PHARMACEUTICAL PRODUCT COMPLAINT [None]
  - SINUS POLYP [None]
  - URINARY RETENTION [None]
